FAERS Safety Report 11145333 (Version 2)
Quarter: 2016Q2

REPORT INFORMATION
  Report Type: Spontaneous
  Country: DK (occurrence: DK)
  Receive Date: 20150526
  Receipt Date: 20160516
  Transmission Date: 20160815
  Serious: Yes (Hospitalization)
  Sender: FDA-Public Use
  Company Number: DK-GALDERMA-DK15000402

PATIENT
  Age: 50 Year
  Sex: Male

DRUGS (5)
  1. METRONIDAZOLE. [Concomitant]
     Active Substance: METRONIDAZOLE
     Indication: SKIN DISORDER
     Route: 061
     Dates: start: 201411
  2. TETRACYCLINE [Concomitant]
     Active Substance: TETRACYCLINE
     Indication: SKIN DISORDER
  3. FINACEA [Concomitant]
     Active Substance: AZELAIC ACID
     Indication: SKIN DISORDER
     Dates: start: 201410
  4. MIRVASO [Suspect]
     Active Substance: BRIMONIDINE TARTRATE
     Indication: ROSACEA
     Dosage: 0.33%
     Route: 061
     Dates: start: 20141015
  5. NIZORAL [Concomitant]
     Active Substance: KETOCONAZOLE
     Indication: SKIN DISORDER
     Route: 061
     Dates: start: 20141015

REACTIONS (2)
  - Dermatitis contact [Recovered/Resolved]
  - Skin sensitisation [Recovered/Resolved]

NARRATIVE: CASE EVENT DATE: 20141031
